FAERS Safety Report 4813788-2 (Version None)
Quarter: 2005Q4

REPORT INFORMATION
  Report Type: 
  Country: None (occurrence: None)
  Receive Date: 20051028
  Receipt Date: 20050321
  Transmission Date: 20060501
  Serious: No
  Sender: FDA-Public Use
  Company Number: US-GLAXOSMITHKLINE-A0550636A

PATIENT
  Age: 71 Year
  Sex: Male

DRUGS (12)
  1. ADVAIR DISKUS 100/50 [Suspect]
     Indication: CHRONIC OBSTRUCTIVE PULMONARY DISEASE
     Dosage: 1PUFF TWICE PER DAY
     Route: 055
     Dates: start: 20050315
  2. PREDNISONE [Concomitant]
  3. LISINOPRIL [Concomitant]
  4. METHOTREXATE [Concomitant]
  5. TOPROL-XL [Concomitant]
  6. PROTONIX [Concomitant]
  7. COUMADIN [Concomitant]
  8. FOLIC ACID [Concomitant]
  9. CARDIZEM [Concomitant]
  10. LASIX [Concomitant]
  11. POTASSIUM [Concomitant]
  12. LANOXIN [Concomitant]

REACTIONS (2)
  - COUGH [None]
  - DYSPHONIA [None]
